FAERS Safety Report 10259598 (Version 1)
Quarter: 2014Q2

REPORT INFORMATION
  Report Type: Spontaneous
  Country: CA (occurrence: CA)
  Receive Date: 20140625
  Receipt Date: 20140625
  Transmission Date: 20141212
  Serious: Yes (Death, Hospitalization)
  Sender: FDA-Public Use
  Company Number: PHHY2014CA075478

PATIENT
  Age: 39 Year
  Sex: Female
  Weight: 90 kg

DRUGS (11)
  1. COLCHICINE [Suspect]
     Dosage: 40 DF
  2. INDOMETHACIN [Suspect]
     Dosage: 50 DF
  3. ZOPICLONE [Suspect]
     Dosage: 10 DF
  4. TOPIRAMATE [Concomitant]
  5. VALPROIC ACID [Concomitant]
  6. OLANZAPINE [Concomitant]
  7. LORAZEPAM [Concomitant]
  8. LEVOTHYROXINE [Concomitant]
  9. OXYCODONE [Concomitant]
  10. FUROSEMIDE [Concomitant]
  11. OMEPRAZOLE [Concomitant]

REACTIONS (22)
  - Multi-organ failure [Fatal]
  - Toxicity to various agents [Fatal]
  - General physical health deterioration [Unknown]
  - Metabolic acidosis [Unknown]
  - Septic shock [Unknown]
  - Tachycardia [Unknown]
  - Dyspnoea [Unknown]
  - Nausea [Unknown]
  - Vomiting [Unknown]
  - Renal failure acute [Unknown]
  - Respiratory distress [Unknown]
  - Febrile neutropenia [Unknown]
  - Tachypnoea [Unknown]
  - Hypovolaemia [Unknown]
  - Hypotension [Unknown]
  - Agitation [Unknown]
  - Abdominal pain [Unknown]
  - Diarrhoea [Unknown]
  - Platelet count decreased [Unknown]
  - White blood cell count decreased [Unknown]
  - Pain [Unknown]
  - Intentional overdose [Unknown]
